FAERS Safety Report 10640581 (Version 1)
Quarter: 2014Q4

REPORT INFORMATION
  Report Type: Spontaneous
  Country: DE (occurrence: DE)
  Receive Date: 20141209
  Receipt Date: 20141209
  Transmission Date: 20150529
  Serious: Yes (Other)
  Sender: FDA-Public Use
  Company Number: DE-GALDERMA-DE14004533

PATIENT
  Age: 47 Year
  Sex: Female

DRUGS (1)
  1. MIRVASO [Suspect]
     Active Substance: BRIMONIDINE TARTRATE
     Indication: ERYTHEMA
     Dosage: 0.33%
     Route: 061
     Dates: start: 20141024, end: 20141029

REACTIONS (9)
  - Oedema mucosal [Recovered/Resolved]
  - Hot flush [Recovered/Resolved]
  - Discomfort [Recovered/Resolved]
  - Migraine [Recovered/Resolved]
  - Hypertensive crisis [Recovered/Resolved]
  - Circulatory collapse [Recovered/Resolved]
  - Headache [Recovered/Resolved]
  - Peripheral coldness [Recovered/Resolved]
  - Erythema [Recovered/Resolved]

NARRATIVE: CASE EVENT DATE: 20141027
